FAERS Safety Report 26109960 (Version 1)
Quarter: 2025Q4

REPORT INFORMATION
  Report Type: Spontaneous
  Country: EU (occurrence: EU)
  Receive Date: 20251201
  Receipt Date: 20251201
  Transmission Date: 20260117
  Serious: Yes (Other)
  Sender: BEIGENE
  Company Number: EU-BEONEMEDICINES-BGN-2025-020952

PATIENT
  Sex: Female

DRUGS (1)
  1. BRUKINSA [Suspect]
     Active Substance: ZANUBRUTINIB
     Indication: Waldenstrom^s macroglobulinaemia
     Dosage: UNK

REACTIONS (3)
  - Neutropenia [Unknown]
  - Respiratory tract infection viral [Unknown]
  - Thrombocytopenia [Unknown]
